FAERS Safety Report 9827236 (Version 2)
Quarter: 2014Q1

REPORT INFORMATION
  Report Type: Spontaneous
  Country: US (occurrence: US)
  Receive Date: 20140117
  Receipt Date: 20140117
  Transmission Date: 20141002
  Serious: Yes (Death)
  Sender: FDA-Public Use
  Company Number: US-BRISTOL-MYERS SQUIBB COMPANY-19608728

PATIENT
  Age: 59 Year
  Sex: Male

DRUGS (1)
  1. YERVOY [Suspect]
     Indication: MALIGNANT MELANOMA
     Dosage: RECEIVED 4 DOSES: 1ST:22AUG2012,21DEC2012, AND THE LAST 22FEB2013,11JAN13,01FEB13 AND 27FEB13
     Route: 042
     Dates: start: 20120822

REACTIONS (1)
  - Malignant neoplasm progression [Fatal]
